FAERS Safety Report 4868645-2 (Version None)
Quarter: 2005Q4

REPORT INFORMATION
  Report Type: 
  Country: None (occurrence: None)
  Receive Date: 20051223
  Receipt Date: 20051206
  Transmission Date: 20060501
  Serious: Yes (Other)
  Sender: FDA-Public Use
  Company Number: CA200511000863

PATIENT
  Age: 65 Year
  Sex: Female

DRUGS (7)
  1. EVISTA [Suspect]
     Indication: OSTEOPOROSIS
     Dosage: 60  MG, DAILY (1/D)
     Dates: start: 19990202, end: 20051105
  2. ACTONEL [Concomitant]
  3. CALCIUM (CALCIUM) [Concomitant]
  4. VITAMIN D [Concomitant]
  5. CELEBREX [Concomitant]
  6. VIOXX [Concomitant]
  7. REPLENS (CARBOMER, GLYCEROL, PARAFFIN, LIQUID, POLYCARBOPHIL) [Concomitant]

REACTIONS (3)
  - ENDOMETRIAL CANCER STAGE I [None]
  - UTERINE POLYP [None]
  - VULVOVAGINAL DRYNESS [None]
